FAERS Safety Report 14844828 (Version 11)
Quarter: 2021Q4

REPORT INFORMATION
  Report Type: Other
  Country: CA (occurrence: CA)
  Receive Date: 20180504
  Receipt Date: 20211021
  Transmission Date: 20220303
  Serious: Yes (Other)
  Sender: FDA-Public Use
  Company Number: CA-ROCHE-1922128

PATIENT
  Age: 70 Year
  Sex: Female

DRUGS (15)
  1. RITUXAN [Suspect]
     Active Substance: RITUXIMAB
     Indication: Rheumatoid arthritis
     Dosage: RECENT INFUSION: 03/OCT/2017
     Route: 042
     Dates: start: 20170411
  2. RITUXAN [Suspect]
     Active Substance: RITUXIMAB
     Dosage: FIFTH INFUSION
     Route: 042
     Dates: start: 20180403
  3. RITUXAN [Suspect]
     Active Substance: RITUXIMAB
     Dosage: INFUSION NO.6
     Route: 042
     Dates: start: 20180417
  4. DIPHENHYDRAMINE HYDROCHLORIDE [Concomitant]
     Active Substance: DIPHENHYDRAMINE HYDROCHLORIDE
     Indication: Premedication
     Route: 048
     Dates: start: 20170411
  5. ACETAMINOPHEN [Concomitant]
     Active Substance: ACETAMINOPHEN
     Indication: Premedication
     Route: 048
     Dates: start: 20170411
  6. METHYLPREDNISOLONE [Concomitant]
     Active Substance: METHYLPREDNISOLONE
     Indication: Premedication
     Route: 042
     Dates: start: 20170411
  7. METHOTREXATE [Concomitant]
     Active Substance: METHOTREXATE
  8. PREDNISONE [Concomitant]
     Active Substance: PREDNISONE
  9. FOLIC ACID [Concomitant]
     Active Substance: FOLIC ACID
  10. PROLIA [Concomitant]
     Active Substance: DENOSUMAB
  11. ELIQUIS [Concomitant]
     Active Substance: APIXABAN
  12. BISOPROLOL [Concomitant]
     Active Substance: BISOPROLOL
  13. LYRICA [Concomitant]
     Active Substance: PREGABALIN
  14. AMITRIPTYLINE [Concomitant]
     Active Substance: AMITRIPTYLINE
  15. SOLU-MEDROL [Concomitant]
     Active Substance: METHYLPREDNISOLONE SODIUM SUCCINATE
     Indication: Premedication
     Route: 042
     Dates: start: 20181019

REACTIONS (18)
  - Phantom limb syndrome [Not Recovered/Not Resolved]
  - Arthropod bite [Unknown]
  - Infusion related reaction [Unknown]
  - Hypoaesthesia [Unknown]
  - Dysgeusia [Unknown]
  - Paraesthesia [Unknown]
  - Insomnia [Unknown]
  - Erythema [Unknown]
  - Arthropod bite [Recovered/Resolved]
  - Arthralgia [Unknown]
  - Dysgeusia [Unknown]
  - C-reactive protein increased [Unknown]
  - Red blood cell sedimentation rate increased [Unknown]
  - Urinary tract infection [Recovered/Resolved]
  - Head discomfort [Recovered/Resolved]
  - Osteoarthritis [Not Recovered/Not Resolved]
  - Oxygen saturation decreased [Unknown]
  - Dysgeusia [Recovered/Resolved]

NARRATIVE: CASE EVENT DATE: 20170425
